FAERS Safety Report 6811987-1 (Version None)
Quarter: 2010Q2

REPORT INFORMATION
  Report Type: 
  Country: None (occurrence: None)
  Receive Date: 20100628
  Receipt Date: 20100614
  Transmission Date: 20101027
  Serious: Yes (Hospitalization)
  Sender: FDA-Public Use
  Company Number: 2010-0561

PATIENT
  Age: 76 Year
  Sex: Male

DRUGS (1)
  1. APO-GO AMPOULES (APO-GO) (APOMORPHINE HYDROCHLORIDE) (APOMORPHINE HYDR [Suspect]
     Indication: DRUG USE FOR UNKNOWN INDICATION
     Dosage: 10.8 ML (0.9 ML, PER HOUR FROM 8:00 AM TO 8:00 PM, SUBCUTANEOUS
     Route: 058
     Dates: start: 20091123

REACTIONS (3)
  - CONFUSIONAL STATE [None]
  - INCONTINENCE [None]
  - INCORRECT DOSE ADMINISTERED [None]
